FAERS Safety Report 21029158 (Version 2)
Quarter: 2022Q3

REPORT INFORMATION
  Report Type: Spontaneous
  Country: JP (occurrence: JP)
  Receive Date: 20220630
  Receipt Date: 20220729
  Transmission Date: 20221027
  Serious: Yes (Other)
  Sender: FDA-Public Use
  Company Number: JP-BoehringerIngelheim-2022-BI-179125

PATIENT
  Age: 82 Year
  Sex: Female

DRUGS (4)
  1. AFATINIB [Suspect]
     Active Substance: AFATINIB
     Indication: EGFR gene mutation
  2. AFATINIB [Suspect]
     Active Substance: AFATINIB
     Indication: Lung adenocarcinoma
  3. GEFITINIB [Concomitant]
     Active Substance: GEFITINIB
     Indication: EGFR gene mutation
     Route: 065
  4. GEFITINIB [Concomitant]
     Active Substance: GEFITINIB
     Indication: Lung adenocarcinoma

REACTIONS (1)
  - Dementia [Unknown]
